FAERS Safety Report 5573160-7 (Version None)
Quarter: 2007Q4

REPORT INFORMATION
  Report Type: 
  Country: None (occurrence: None)
  Receive Date: 20071224
  Receipt Date: 20071217
  Transmission Date: 20080405
  Serious: Yes (Hospitalization)
  Sender: FDA-Public Use
  Company Number: PL-BAYER-200718371GPV

PATIENT
  Age: 44 Year
  Sex: Female
  Weight: 60 kg

DRUGS (1)
  1. ULTRAVIST 370 A 200ML [Suspect]
     Indication: COMPUTERISED TOMOGRAM
     Dosage: AS USED: 120 ML
     Route: 042
     Dates: start: 20071212, end: 20071212

REACTIONS (4)
  - BLOOD PRESSURE DECREASED [None]
  - CYANOSIS [None]
  - FACE OEDEMA [None]
  - VISUAL DISTURBANCE [None]
